FAERS Safety Report 13756084 (Version 1)
Quarter: 2017Q3

REPORT INFORMATION
  Report Type: Report from Study
  Country: BE (occurrence: BE)
  Receive Date: 20170714
  Receipt Date: 20170714
  Transmission Date: 20171127
  Serious: Yes (Death, Hospitalization)
  Sender: FDA-Public Use
  Company Number: PHHO2017BE004025

PATIENT
  Age: 63 Year
  Sex: Male
  Weight: 87.2 kg

DRUGS (15)
  1. CETUXIMAB. [Suspect]
     Active Substance: CETUXIMAB
     Indication: SQUAMOUS CELL CARCINOMA OF HEAD AND NECK
     Dosage: 250 MG/M2, QW
     Route: 042
     Dates: start: 20160615, end: 20170201
  2. SPIDIFEN [Concomitant]
     Indication: NECK PAIN
     Dosage: 400 MG, PRN
     Route: 048
     Dates: start: 201605, end: 20170209
  3. CALCIUM GLYCEROPHOSPHATE\CELLULOSE\POLYETHYLENE GLYCOL\SACCHARIN SODIUM\SODIUM HYDROXIDE\SODIUM LAURYL SULFATE\SODIUM MAGNESIUM SILICATE\SODIUM MONOFLUOROPHOSPHATE\SORBITOL\WATER [Concomitant]
     Active Substance: CALCIUM GLYCEROPHOSPHATE\POLYETHYLENE GLYCOLS\POWDERED CELLULOSE\SACCHARIN SODIUM DIHYDRATE\SODIUM HYDROXIDE\SODIUM LAURYL SULFATE\SODIUM MAGNESIUM SILICATE\SODIUM MONOFLUOROPHOSPHATE\SORBITOL\WATER
     Indication: CONSTIPATION
     Dosage: 1 ^ZAKJE^ PRN
     Route: 048
     Dates: end: 20170209
  4. VOLTAREN [Concomitant]
     Active Substance: DICLOFENAC SODIUM
     Indication: NECK PAIN
     Dosage: PRN
     Route: 061
     Dates: start: 20160824, end: 20170209
  5. PRIMPERAN [Concomitant]
     Active Substance: METOCLOPRAMIDE HYDROCHLORIDE
     Indication: ABDOMINAL PAIN
     Dosage: 4/D PRN
     Route: 048
     Dates: start: 20160907
  6. SILVER NITRATE. [Concomitant]
     Active Substance: SILVER NITRATE
     Indication: SKIN FISSURES
     Dosage: ONCE, PRN
     Route: 061
     Dates: start: 20160831, end: 20160831
  7. LEE011 [Suspect]
     Active Substance: RIBOCICLIB
     Indication: SQUAMOUS CELL CARCINOMA OF HEAD AND NECK
     Dosage: 600 MG, TID
     Route: 048
     Dates: start: 20160615
  8. OMEPRAZOLE. [Concomitant]
     Active Substance: OMEPRAZOLE
     Indication: PROPHYLAXIS
     Dosage: 40 MG, QD
     Route: 048
     Dates: start: 20160908, end: 20170209
  9. DAFALGAN [Concomitant]
     Active Substance: ACETAMINOPHEN
     Indication: ARTHRALGIA
     Dosage: 1 G, PRN
     Route: 048
     Dates: start: 2001, end: 20170209
  10. BREXINE [Concomitant]
     Active Substance: PIROXICAM BETADEX
     Indication: ARTHRALGIA
     Dosage: PRN
     Route: 048
     Dates: start: 20160925, end: 20170209
  11. GAVISCON [Concomitant]
     Active Substance: ALUMINUM HYDROXIDE\MAGNESIUM CARBONATE
     Indication: VOMITING
     Dosage: 1 TSP, PRN
     Route: 048
     Dates: start: 20160704, end: 20160824
  12. MOBILISIN [Concomitant]
     Indication: ARTHRALGIA
     Dosage: 2X20MG/D
     Route: 048
     Dates: start: 20160925, end: 20170209
  13. MEDROL [Concomitant]
     Active Substance: METHYLPREDNISOLONE
     Indication: ABDOMINAL DISCOMFORT
     Dosage: 16 MG, QD, ONLY TAKEN ON THURSDAY (DAY AFTER ADMINISTRATION)
     Route: 048
     Dates: start: 20161027, end: 20170209
  14. DOLZAM [Concomitant]
     Indication: ARTHRALGIA
     Dosage: 6X10 DROPS/DAY
     Route: 048
     Dates: start: 2001
  15. FLAMAZINE [Concomitant]
     Active Substance: SILVER SULFADIAZINE
     Indication: THERMAL BURN
     Dosage: 3 APPLICATIONS
     Route: 061
     Dates: start: 20161210, end: 20161210

REACTIONS (1)
  - Interstitial lung disease [Fatal]

NARRATIVE: CASE EVENT DATE: 20170209
